FAERS Safety Report 8129923-7 (Version None)
Quarter: 2012Q1

REPORT INFORMATION
  Report Type: 
  Country: None (occurrence: None)
  Receive Date: 20120210
  Receipt Date: 20120208
  Transmission Date: 20120608
  Serious: Yes (Other)
  Sender: FDA-Public Use
  Company Number: US-PFIZER INC-2012034985

PATIENT
  Sex: Male
  Weight: 86.168 kg

DRUGS (2)
  1. ZITHROMAX [Suspect]
     Indication: UPPER RESPIRATORY TRACT INFECTION
     Dosage: UNK, 1X/DAY
     Route: 048
     Dates: start: 20120101, end: 20120101
  2. EMCYT [Concomitant]
     Indication: PROSTATIC DISORDER
     Dosage: UNK

REACTIONS (4)
  - CHOKING [None]
  - RED BLOOD CELL SEDIMENTATION RATE INCREASED [None]
  - FOREIGN BODY [None]
  - RETCHING [None]
